FAERS Safety Report 13173138 (Version 1)
Quarter: 2017Q1

REPORT INFORMATION
  Report Type: Spontaneous
  Country: US (occurrence: US)
  Receive Date: 20170201
  Receipt Date: 20170201
  Transmission Date: 20170428
  Serious: No
  Sender: FDA-Public Use
  Company Number: US-ABBVIE-16P-163-1762469-00

PATIENT
  Sex: Male

DRUGS (1)
  1. HUMIRA [Suspect]
     Active Substance: ADALIMUMAB
     Indication: CROHN^S DISEASE
     Route: 058
     Dates: start: 201610, end: 201610

REACTIONS (7)
  - Rectal haemorrhage [Unknown]
  - Weight decreased [Unknown]
  - Activities of daily living impaired [Unknown]
  - Mucous stools [Unknown]
  - Abdominal pain upper [Unknown]
  - Malaise [Unknown]
  - Diarrhoea [Unknown]
